FAERS Safety Report 5950060-1 (Version None)
Quarter: 2008Q4

REPORT INFORMATION
  Report Type: 
  Country: None (occurrence: None)
  Receive Date: 20081112
  Receipt Date: 20081031
  Transmission Date: 20090506
  Serious: Yes (Hospitalization)
  Sender: FDA-Public Use
  Company Number: US-ROCHE-595190

PATIENT
  Sex: Female
  Weight: 71.7 kg

DRUGS (14)
  1. PEG-INTERFERON ALFA 2A (RO 25-8310) [Suspect]
     Indication: HEPATITIS C
     Route: 058
     Dates: start: 20080918, end: 20080918
  2. RIBAVIRIN [Suspect]
     Indication: HEPATITIS C
     Dosage: DOSING AMOUNT: 400 MG MORNING AND 600 MG EVENING
     Route: 048
     Dates: start: 20080918, end: 20080920
  3. ONE SUSPECTED MEDICATION [Suspect]
     Indication: HEPATITIS C
     Dosage: DRUG NAME REPORTED AS PF-00868554
     Route: 048
     Dates: start: 20080918, end: 20080920
  4. LANTUS [Concomitant]
     Route: 058
     Dates: start: 20080201
  5. METFORMIN HCL [Concomitant]
     Route: 048
     Dates: start: 19980101
  6. GLIPIZIDE [Concomitant]
     Route: 048
     Dates: start: 20060101
  7. LOSARTAN POTASSIUM [Concomitant]
     Route: 048
     Dates: start: 20060101
  8. CLONIDINE [Concomitant]
     Route: 048
     Dates: start: 20060101
  9. PAXIL [Concomitant]
     Route: 048
     Dates: start: 20080101
  10. ZOCOR [Concomitant]
     Route: 048
     Dates: start: 20080801
  11. HYDROCHLOROTHIAZIDE [Concomitant]
     Route: 048
     Dates: start: 20080101
  12. ACETYLSALICYLIC ACID SRT [Concomitant]
     Route: 048
     Dates: start: 20060101
  13. BENADRYL [Concomitant]
     Route: 048
  14. MULTI-VITAMIN [Concomitant]
     Route: 048
     Dates: start: 20070101

REACTIONS (1)
  - BLOOD CREATININE INCREASED [None]
